FAERS Safety Report 13079364 (Version 2)
Quarter: 2017Q1

REPORT INFORMATION
  Report Type: Spontaneous
  Country: US (occurrence: US)
  Receive Date: 20170103
  Receipt Date: 20170123
  Transmission Date: 20170428
  Serious: Yes (Hospitalization)
  Sender: FDA-Public Use
  Company Number: US-BIOGEN-2016BI00336591

PATIENT
  Age: 39 Year
  Sex: Female

DRUGS (1)
  1. TYSABRI [Suspect]
     Active Substance: NATALIZUMAB
     Indication: MULTIPLE SCLEROSIS
     Route: 065
     Dates: start: 20110121

REACTIONS (5)
  - Pneumonia [Not Recovered/Not Resolved]
  - Viral infection [Unknown]
  - Aphasia [Unknown]
  - Dysphagia [Unknown]
  - Infection [Unknown]

NARRATIVE: CASE EVENT DATE: 2016
